FAERS Safety Report 15375555 (Version 1)
Quarter: 2018Q4

REPORT INFORMATION
  Report Type: Spontaneous
  Country: US (occurrence: US)
  Receive Date: 20180912
  Receipt Date: 20180912
  Transmission Date: 20190204
  Serious: Yes (Other)
  Sender: FDA-Public Use
  Company Number: US-GLAXOSMITHKLINE-US2018158790

PATIENT
  Age: 30 Year
  Sex: Male

DRUGS (2)
  1. IBUPROFEN. [Suspect]
     Active Substance: IBUPROFEN
     Indication: PRODUCT USED FOR UNKNOWN INDICATION
     Dosage: UNK
  2. SENSODYNE FULL PROTECTION [Suspect]
     Active Substance: POTASSIUM NITRATE\SODIUM FLUORIDE
     Indication: PRODUCT USED FOR UNKNOWN INDICATION
     Dosage: UNK
     Dates: start: 20180828, end: 20180828

REACTIONS (22)
  - Abdominal pain upper [Unknown]
  - Gastrointestinal tract irritation [Unknown]
  - Gingival pruritus [Unknown]
  - Headache [Unknown]
  - Oral pain [Unknown]
  - Neck pain [Unknown]
  - Drug ineffective [Unknown]
  - Gingival pain [Unknown]
  - Toothache [Unknown]
  - Stomatitis [Unknown]
  - Migraine [Unknown]
  - Product complaint [Unknown]
  - Gingival discomfort [Unknown]
  - Insomnia [Unknown]
  - Oral pruritus [Unknown]
  - Pain [Unknown]
  - Nausea [Unknown]
  - Hospitalisation [Unknown]
  - Oral discomfort [Unknown]
  - Pain in jaw [Unknown]
  - Ill-defined disorder [Unknown]
  - Condition aggravated [Unknown]

NARRATIVE: CASE EVENT DATE: 20180828
